FAERS Safety Report 15324501 (Version 1)
Quarter: 2018Q3

REPORT INFORMATION
  Report Type: Spontaneous
  Country: US (occurrence: US)
  Receive Date: 20180822
  Receipt Date: 20180822
  Transmission Date: 20181010
  Serious: Yes (Life-Threatening, Hospitalization)
  Sender: FDA-Public Use
  Company Number: None

PATIENT
  Age: 47 Year
  Sex: Female
  Weight: 74.7 kg

DRUGS (1)
  1. LISINOPRIL?HCTZ [Suspect]
     Active Substance: HYDROCHLOROTHIAZIDE\LISINOPRIL
     Indication: HYPERTENSION
     Dosage: ?          QUANTITY:1 TABLET(S);?
     Route: 048
     Dates: start: 20180817, end: 20180818

REACTIONS (5)
  - Swollen tongue [None]
  - Mouth swelling [None]
  - Pharyngeal oedema [None]
  - Angioedema [None]
  - Laryngeal oedema [None]

NARRATIVE: CASE EVENT DATE: 20180818
